FAERS Safety Report 25283146 (Version 1)
Quarter: 2025Q2

REPORT INFORMATION
  Report Type: Spontaneous
  Country: CN (occurrence: CN)
  Receive Date: 20250508
  Receipt Date: 20250508
  Transmission Date: 20250717
  Serious: Yes (Hospitalization)
  Sender: COHERUS
  Company Number: CN-SHANGHAI JUNSHI BIOSCIENCES CO., LTD.-CN2025014035

PATIENT

DRUGS (5)
  1. TORIPALIMAB [Suspect]
     Active Substance: TORIPALIMAB
     Indication: Oesophageal squamous cell carcinoma
     Dosage: 240 MG, Q3W
     Route: 041
     Dates: start: 20250401, end: 20250401
  2. DOCETAXEL [Suspect]
     Active Substance: DOCETAXEL
     Indication: Oesophageal squamous cell carcinoma
     Dosage: 105 MG, Q3W
     Route: 041
     Dates: start: 20250401, end: 20250401
  3. LEUCOVORIN CALCIUM [Suspect]
     Active Substance: LEUCOVORIN CALCIUM
     Indication: Oesophageal squamous cell carcinoma
     Dosage: 300 MG (D1-D3, QD), EVERY 3 WEEKS AS A CYCLE
     Route: 041
     Dates: start: 20250401, end: 20250403
  4. FLUOROURACIL [Suspect]
     Active Substance: FLUOROURACIL
     Indication: Oesophageal squamous cell carcinoma
     Dosage: 3000 MG, Q3W, PUMP INJECTION
     Dates: start: 20250401, end: 20250401
  5. CISPLATIN [Suspect]
     Active Substance: CISPLATIN
     Indication: Oesophageal squamous cell carcinoma
     Dosage: 35 MG (D1-D3, QD), EVERY 3 WEEKS AS A CYCLE
     Route: 041
     Dates: start: 20250401, end: 20250403

REACTIONS (1)
  - Myelosuppression [Recovering/Resolving]

NARRATIVE: CASE EVENT DATE: 20250405
